FAERS Safety Report 8116991-1 (Version None)
Quarter: 2012Q1

REPORT INFORMATION
  Report Type: 
  Country: None (occurrence: None)
  Receive Date: 20120206
  Receipt Date: 20120125
  Transmission Date: 20120608
  Serious: Yes (Other)
  Sender: FDA-Public Use
  Company Number: US-ROCHE-789046

PATIENT
  Weight: 81.72 kg

DRUGS (1)
  1. ACCUTANE [Suspect]
     Indication: PRODUCT USED FOR UNKNOWN INDICATION
     Route: 048
     Dates: start: 19880101, end: 19890101

REACTIONS (4)
  - COLITIS ULCERATIVE [None]
  - PANCREATITIS [None]
  - ANAL STENOSIS [None]
  - INFLAMMATORY BOWEL DISEASE [None]
